FAERS Safety Report 5356683-5 (Version None)
Quarter: 2007Q2

REPORT INFORMATION
  Report Type: 
  Country: None (occurrence: None)
  Receive Date: 20070614
  Receipt Date: 20070612
  Transmission Date: 20071010
  Serious: Yes (Death)
  Sender: FDA-Public Use
  Company Number: IL-NOVOPROD-264374

PATIENT
  Age: 54 Year
  Sex: Male

DRUGS (1)
  1. NOVOSEVEN [Suspect]
     Indication: HAEMORRHAGE
     Dosage: 7.2 MG, QD
     Route: 042
     Dates: start: 20070602, end: 20070602

REACTIONS (1)
  - CEREBRAL ARTERY STENOSIS [None]
